FAERS Safety Report 22045435 (Version 2)
Quarter: 2023Q1

REPORT INFORMATION
  Report Type: Spontaneous
  Country: FR (occurrence: FR)
  Receive Date: 20230228
  Receipt Date: 20230314
  Transmission Date: 20230418
  Serious: Yes (Death, Life-Threatening, Hospitalization, Other)
  Sender: FDA-Public Use
  Company Number: FR-BAYER-2017-089517

PATIENT
  Age: 78 Year
  Sex: Male

DRUGS (6)
  1. GADOBUTROL [Suspect]
     Active Substance: GADOBUTROL
     Indication: Magnetic resonance imaging
     Dosage: 8 ML, ONCE
     Route: 042
     Dates: start: 20170505, end: 20170505
  2. GADOBUTROL [Suspect]
     Active Substance: GADOBUTROL
     Indication: Cerebrovascular accident
     Dosage: 7.5 UNK
  3. GADOBUTROL [Suspect]
     Active Substance: GADOBUTROL
     Indication: Magnetic resonance imaging head
  4. PLAVIX [Concomitant]
     Active Substance: CLOPIDOGREL BISULFATE
  5. CRESTOR [Concomitant]
     Active Substance: ROSUVASTATIN CALCIUM
  6. PERINDOPRIL [Concomitant]
     Active Substance: PERINDOPRIL

REACTIONS (14)
  - Acute pulmonary oedema [Fatal]
  - Cardiac arrest [Fatal]
  - Bradycardia [Not Recovered/Not Resolved]
  - Blood pressure systolic decreased [Not Recovered/Not Resolved]
  - Shock [Fatal]
  - Acute respiratory distress syndrome [Not Recovered/Not Resolved]
  - Bronchial obstruction [None]
  - Dizziness [None]
  - Vomiting [None]
  - Diarrhoea [Unknown]
  - Dyspnoea [None]
  - Nausea [None]
  - Lower respiratory tract congestion [None]
  - Oxygen saturation decreased [None]

NARRATIVE: CASE EVENT DATE: 20170505
